FAERS Safety Report 7091221-0 (Version None)
Quarter: 2010Q4

REPORT INFORMATION
  Report Type: 
  Country: None (occurrence: None)
  Receive Date: 20101109
  Receipt Date: 20101102
  Transmission Date: 20110411
  Serious: Yes (Other)
  Sender: FDA-Public Use
  Company Number: DE-ROCHE-738816

PATIENT
  Sex: Male
  Weight: 1.5 kg

DRUGS (1)
  1. CYMEVENE [Suspect]
     Route: 065
     Dates: start: 20101001

REACTIONS (1)
  - SUPRAVENTRICULAR TACHYCARDIA [None]
